FAERS Safety Report 24461122 (Version 1)
Quarter: 2024Q4

REPORT INFORMATION
  Report Type: Report from Study
  Country: CA (occurrence: CA)
  Receive Date: 20241018
  Receipt Date: 20241018
  Transmission Date: 20250115
  Serious: No
  Sender: ROCHE
  Company Number: CA-ROCHE-3574662

PATIENT
  Sex: Female

DRUGS (17)
  1. RITUXAN [Suspect]
     Active Substance: RITUXIMAB
     Indication: Rheumatoid arthritis
     Dosage: LAST INFUSION: 25/JAN/2024? FREQUENCY TEXT:DAY 1, 15
     Route: 042
     Dates: start: 20170504
  2. BACLOFEN [Concomitant]
     Active Substance: BACLOFEN
  3. CALCIUM [Concomitant]
     Active Substance: CALCIUM
  4. DAYVIGO [Concomitant]
     Active Substance: LEMBOREXANT
  5. LORAZEPAM [Concomitant]
     Active Substance: LORAZEPAM
  6. LYRICA [Concomitant]
     Active Substance: PREGABALIN
  7. MAGNESIUM [Concomitant]
     Active Substance: MAGNESIUM
  8. OMEGA 3 [Concomitant]
     Active Substance: CAPSAICIN
  9. PREDNISONE [Concomitant]
     Active Substance: PREDNISONE
     Indication: Premedication
     Dosage: FIRST PIR RECEIVED
     Route: 048
     Dates: start: 20180912
  10. RABEPRAZOLE [Concomitant]
     Active Substance: RABEPRAZOLE
  11. RABEPRAZOLE [Concomitant]
     Active Substance: RABEPRAZOLE
  12. ALBUTEROL [Concomitant]
     Active Substance: ALBUTEROL
  13. SOLU-MEDROL [Concomitant]
     Active Substance: METHYLPREDNISOLONE SODIUM SUCCINATE
     Indication: Premedication
     Route: 048
  14. SYMBICORT [Concomitant]
     Active Substance: BUDESONIDE\FORMOTEROL FUMARATE DIHYDRATE
  15. TYLENOL [Concomitant]
     Active Substance: ACETAMINOPHEN
     Indication: Premedication
     Dosage: FIRST PIR RECEIVED
     Route: 048
     Dates: start: 20180912
  16. ZINC [Concomitant]
     Active Substance: ZINC
  17. ZOPICLONE [Concomitant]
     Active Substance: ZOPICLONE

REACTIONS (1)
  - Sleep disorder [Unknown]
